FAERS Safety Report 13632492 (Version 1)
Quarter: 2017Q2

REPORT INFORMATION
  Report Type: Spontaneous
  Country: US (occurrence: US)
  Receive Date: 20170531
  Receipt Date: 20170531
  Transmission Date: 20170830
  Serious: No
  Sender: FDA-Public Use
  Company Number: US-ASTELLAS-1462205

PATIENT
  Sex: Female

DRUGS (6)
  1. CURCUMIN [Concomitant]
     Active Substance: CURCUMIN
  2. FISH OIL [Concomitant]
     Active Substance: FISH OIL
  3. KLOR-CON [Concomitant]
     Active Substance: POTASSIUM CHLORIDE
  4. TARCEVA [Suspect]
     Active Substance: ERLOTINIB HYDROCHLORIDE
     Indication: LUNG NEOPLASM MALIGNANT
     Route: 048
     Dates: start: 20140908
  5. GLUCOSAMINE HYDROCHLORIDE [Concomitant]
     Active Substance: GLUCOSAMINE HYDROCHLORIDE
  6. HYDROCHLOROTHIAZIDE. [Concomitant]
     Active Substance: HYDROCHLOROTHIAZIDE

REACTIONS (4)
  - Insomnia [Unknown]
  - Diarrhoea [Unknown]
  - Tinnitus [Unknown]
  - Nausea [Unknown]
